FAERS Safety Report 21762131 (Version 1)
Quarter: 2022Q4

REPORT INFORMATION
  Report Type: Spontaneous
  Country: HR (occurrence: HR)
  Receive Date: 20221221
  Receipt Date: 20221221
  Transmission Date: 20230112
  Serious: Yes (Other)
  Sender: FDA-Public Use
  Company Number: HR-TAKEDA-2022TUS098285

PATIENT
  Sex: Male

DRUGS (2)
  1. BRIGATINIB [Suspect]
     Active Substance: BRIGATINIB
     Indication: Lung adenocarcinoma
     Dosage: UNK
     Route: 065
     Dates: start: 202110
  2. BRIGATINIB [Suspect]
     Active Substance: BRIGATINIB
     Dosage: 90 MILLIGRAM
     Route: 065

REACTIONS (3)
  - Renal impairment [Unknown]
  - Type 2 diabetes mellitus [Unknown]
  - Glomerular filtration rate decreased [Unknown]

NARRATIVE: CASE EVENT DATE: 20211201
